FAERS Safety Report 15456356 (Version 1)
Quarter: 2018Q3

REPORT INFORMATION
  Report Type: Spontaneous
  Country: US (occurrence: US)
  Receive Date: 20180928
  Receipt Date: 20180928
  Transmission Date: 20181010
  Serious: Yes (Death)
  Sender: FDA-Public Use
  Company Number: None

PATIENT
  Age: 73 Year
  Sex: Female
  Weight: 66.15 kg

DRUGS (18)
  1. AUSTEDO [Suspect]
     Active Substance: DEUTETRABENAZINE
     Indication: TARDIVE DYSKINESIA
     Route: 048
     Dates: start: 20180702, end: 20180920
  2. ALPRAZOLAM 1 MG [Concomitant]
     Active Substance: ALPRAZOLAM
     Dates: start: 20080902
  3. MELATONIN 3 MG [Concomitant]
     Dates: start: 20160321
  4. GLIMEPIRIDE 4 MG [Concomitant]
     Active Substance: GLIMEPIRIDE
     Dates: start: 20180423
  5. LISINOPRIL 2.5 MG [Concomitant]
     Dates: start: 20180815
  6. NYSTATIN TOPICAL CREAM [Concomitant]
     Dates: start: 20180815
  7. SERTRALINE 200 MG [Concomitant]
     Dates: start: 20121215
  8. FLAVOXATE 100 MG [Concomitant]
     Dates: start: 20120712
  9. LEVOTHYROXINE 125 MCG [Concomitant]
     Active Substance: LEVOTHYROXINE SODIUM
     Dates: start: 20100317
  10. CALCIUM 600 MG [Concomitant]
     Dates: start: 20120506
  11. SIMVASTATIN 40 MG [Concomitant]
     Active Substance: SIMVASTATIN
     Dates: start: 20110601
  12. HYDROXYZINE 25 MG [Concomitant]
     Dates: start: 20180716
  13. VITAMIN B12 1000 MCG [Concomitant]
     Dates: start: 20140619
  14. BACLOFEN 10 MG [Concomitant]
     Active Substance: BACLOFEN
     Dates: start: 20091216
  15. LEVEMIR FLEX TOUCH 14 UNITS [Concomitant]
     Dates: start: 20170601
  16. AUSTEDO [Concomitant]
     Active Substance: DEUTETRABENAZINE
     Dates: start: 20180702
  17. METOPROLOL SUCCINATE ER 50 MG [Concomitant]
     Active Substance: METOPROLOL SUCCINATE
     Dates: start: 20140728
  18. PANTOPRAZOLE 40 MG [Concomitant]
     Active Substance: PANTOPRAZOLE SODIUM
     Dates: start: 20180318

REACTIONS (2)
  - Arrhythmia [None]
  - Acute myocardial infarction [None]

NARRATIVE: CASE EVENT DATE: 20180920
